FAERS Safety Report 23612264 (Version 2)
Quarter: 2025Q2

REPORT INFORMATION
  Report Type: Spontaneous
  Country: JP (occurrence: JP)
  Receive Date: 20240308
  Receipt Date: 20250502
  Transmission Date: 20250717
  Serious: Yes (Other)
  Sender: GENMAB
  Company Number: JP-GENMAB-2024-00669

PATIENT

DRUGS (2)
  1. EPKINLY [Suspect]
     Active Substance: EPCORITAMAB-BYSP
     Indication: Product used for unknown indication
     Route: 058
     Dates: start: 20240117
  2. CORTICOTROPIN [Suspect]
     Active Substance: CORTICOTROPIN
     Indication: Prophylaxis
     Dates: start: 202401

REACTIONS (3)
  - Malignant neoplasm progression [Unknown]
  - Decreased immune responsiveness [Unknown]
  - Infection [Unknown]

NARRATIVE: CASE EVENT DATE: 20240101
